FAERS Safety Report 5449575-4 (Version None)
Quarter: 2007Q3

REPORT INFORMATION
  Report Type: 
  Country: None (occurrence: None)
  Receive Date: 20070910
  Receipt Date: 20070910
  Transmission Date: 20080115
  Serious: Yes (Hospitalization)
  Sender: FDA-Public Use
  Company Number: None

PATIENT
  Sex: Male
  Weight: 49 kg

DRUGS (2)
  1. CISPLATIN [Suspect]
     Indication: TONSIL CANCER
     Dosage: 100MG/M2 IV Q3W
     Route: 042
     Dates: start: 20070821
  2. CETUXIMAB [Suspect]
     Indication: TONSIL CANCER
     Dosage: 250MG/M2 IV QW
     Route: 042
     Dates: start: 20070821, end: 20070904

REACTIONS (5)
  - ANAEMIA [None]
  - BLOOD BILIRUBIN INCREASED [None]
  - GLOMERULAR FILTRATION RATE DECREASED [None]
  - HYPOTENSION [None]
  - INFUSION RELATED REACTION [None]
